FAERS Safety Report 18793469 (Version 1)
Quarter: 2021Q1

REPORT INFORMATION
  Report Type: Spontaneous
  Country: DE (occurrence: DE)
  Receive Date: 20210127
  Receipt Date: 20210127
  Transmission Date: 20210419
  Serious: Yes (Congenital Anomaly)
  Sender: FDA-Public Use
  Company Number: DE-PFIZER INC-2021049825

PATIENT
  Sex: Female

DRUGS (4)
  1. EUTHYROX [Concomitant]
     Active Substance: LEVOTHYROXINE SODIUM
     Indication: THYROID HORMONE REPLACEMENT THERAPY
     Dosage: 150 UG/D (TO 112UG/D)
     Route: 064
     Dates: start: 20190615, end: 20190910
  2. ESCITALOPRAM [Suspect]
     Active Substance: ESCITALOPRAM OXALATE
     Indication: TENSION HEADACHE
     Dosage: 5 MG, DAILY
     Route: 064
     Dates: start: 20190615, end: 20190716
  3. GABAPENTIN. [Suspect]
     Active Substance: GABAPENTIN
     Indication: TENSION HEADACHE
     Dosage: 900 MG (300 MG IN THE MORNING, 600 MG IN THE EVENING)
     Route: 064
     Dates: start: 20190615, end: 20190716
  4. UTROGEST [Concomitant]
     Active Substance: PROGESTERONE
     Indication: HAEMORRHAGE IN PREGNANCY
     Dosage: 200 MG, DAILY, (100?0?100), 6.3. ? 6.5. GESTATIONAL WEEK
     Route: 064
     Dates: start: 20190730, end: 20190801

REACTIONS (6)
  - Oligohydramnios [Recovered/Resolved]
  - Congenital absence of vertebra [Unknown]
  - Foetal exposure during pregnancy [Unknown]
  - Subdural hygroma [Unknown]
  - Gastroschisis [Unknown]
  - Hydrops foetalis [Unknown]
